FAERS Safety Report 5751603-3 (Version None)
Quarter: 2008Q2

REPORT INFORMATION
  Report Type: 
  Country: None (occurrence: None)
  Receive Date: 20080528
  Receipt Date: 20080519
  Transmission Date: 20081010
  Serious: Yes (Other)
  Sender: FDA-Public Use
  Company Number: PHHY2008BR08368

PATIENT
  Age: 7 Year
  Sex: Male

DRUGS (1)
  1. RITALIN [Suspect]
     Dosage: 10 TABLETS
     Route: 048
     Dates: start: 20080519

REACTIONS (2)
  - ACCIDENTAL EXPOSURE [None]
  - GASTRIC LAVAGE [None]
